FAERS Safety Report 9322627 (Version 2)
Quarter: 2013Q2

REPORT INFORMATION
  Report Type: Spontaneous
  Country: JP (occurrence: JP)
  Receive Date: 20130531
  Receipt Date: 20130611
  Transmission Date: 20140414
  Serious: Yes (Hospitalization, Disabling)
  Sender: FDA-Public Use
  Company Number: JP-B.I. PHARMACEUTICALS,INC./RIDGEFIELD-2013-BI-14661NB

PATIENT
  Age: 63 Year
  Sex: Male
  Weight: 64.9 kg

DRUGS (6)
  1. BI-SIFROL [Suspect]
     Indication: PARKINSON^S DISEASE
     Dosage: 2.5 MG
     Route: 048
     Dates: start: 20060704, end: 20130523
  2. MADOPAR [Concomitant]
     Indication: PARKINSON^S DISEASE
     Dosage: 100 MG
     Route: 048
     Dates: start: 20060411
  3. EPADEL S [Concomitant]
     Indication: HYPERLIPIDAEMIA
     Dosage: 1800 MG
     Route: 048
     Dates: start: 20070227, end: 20080623
  4. BASEN OD [Concomitant]
     Indication: DIABETES MELLITUS
     Dosage: 0.9 MG
     Route: 048
     Dates: start: 20071120
  5. FP-OD [Concomitant]
     Indication: PARKINSON^S DISEASE
     Dosage: 2.5 MG
     Route: 048
     Dates: start: 20110413
  6. MYSLEE [Concomitant]
     Indication: INSOMNIA
     Dosage: 5 MG
     Route: 048
     Dates: start: 20130227

REACTIONS (1)
  - Interstitial lung disease [Not Recovered/Not Resolved]
